FAERS Safety Report 18767637 (Version 1)
Quarter: 2021Q1

REPORT INFORMATION
  Report Type: Spontaneous
  Country: US (occurrence: US)
  Receive Date: 20210120
  Receipt Date: 20210120
  Transmission Date: 20210419
  Serious: Yes (Other)
  Sender: FDA-Public Use
  Company Number: None

PATIENT
  Age: 18 Year
  Sex: Female
  Weight: 52.1 kg

DRUGS (2)
  1. LAMOTRIGINE 100 MG BID [Suspect]
     Active Substance: LAMOTRIGINE
     Indication: EPILEPSY
     Route: 048
  2. LAMOTRIGINE 100MG BID [Suspect]
     Active Substance: LAMOTRIGINE
     Indication: EPILEPSY
     Route: 048
     Dates: start: 20200114

REACTIONS (5)
  - Condition aggravated [None]
  - Mood altered [None]
  - Drug intolerance [None]
  - Seizure [None]
  - Hot flush [None]

NARRATIVE: CASE EVENT DATE: 20201015
